FAERS Safety Report 14798256 (Version 2)
Quarter: 2018Q2

REPORT INFORMATION
  Report Type: Spontaneous
  Country: US (occurrence: US)
  Receive Date: 20180424
  Receipt Date: 20180622
  Transmission Date: 20180711
  Serious: Yes (Hospitalization, Other)
  Sender: FDA-Public Use
  Company Number: US-SUN PHARMACEUTICAL INDUSTRIES LTD-2018US-170446

PATIENT
  Age: 36 Year
  Sex: Male

DRUGS (1)
  1. LOPERAMIDE [Suspect]
     Active Substance: LOPERAMIDE
     Indication: PRODUCT USED FOR UNKNOWN INDICATION
     Dosage: (30-200 TABLETS OF 2 MG LOPERAMIDE) DAILY
     Route: 048

REACTIONS (10)
  - Cardiac arrest [Recovering/Resolving]
  - Bundle branch block right [Unknown]
  - Hyperthermia [Recovering/Resolving]
  - Electrocardiogram QT prolonged [Recovering/Resolving]
  - Serotonin syndrome [Unknown]
  - Clonus [Recovering/Resolving]
  - Electrocardiogram QRS complex prolonged [Recovering/Resolving]
  - Hyperreflexia [Recovering/Resolving]
  - Substance use [Unknown]
  - Overdose [Recovering/Resolving]
